FAERS Safety Report 5404046-6 (Version None)
Quarter: 2007Q3

REPORT INFORMATION
  Report Type: 
  Country: None (occurrence: None)
  Receive Date: 20070730
  Receipt Date: 20070713
  Transmission Date: 20080115
  Serious: Yes (Other)
  Sender: FDA-Public Use
  Company Number: VNL_00647_2007

PATIENT
  Sex: Male

DRUGS (2)
  1. APO-GO (APO-GO - APOMORPHINE HYDROCHLORIDE) (NOT SPECIFIED) [Suspect]
     Indication: PARKINSON'S DISEASE
     Dosage: (DF FOR UNKNOWN SUBCUTANEOUS)
     Route: 058
  2. LEVODOPA [Concomitant]

REACTIONS (4)
  - COOMBS TEST POSITIVE [None]
  - DYSKINESIA [None]
  - RETICULOCYTE COUNT INCREASED [None]
  - WEIGHT DECREASED [None]
